FAERS Safety Report 4446670-3 (Version None)
Quarter: 2004Q3

REPORT INFORMATION
  Report Type: 
  Country: None (occurrence: None)
  Receive Date: 20040910
  Receipt Date: 20040902
  Transmission Date: 20050211
  Serious: Yes (Other)
  Sender: FDA-Public Use
  Company Number: US-MERCK-0409USA00233

PATIENT
  Age: 48 Year
  Sex: Male

DRUGS (1)
  1. VIOXX [Suspect]
     Indication: SCIATICA
     Route: 048
     Dates: start: 20040803, end: 20040817

REACTIONS (3)
  - ABDOMINAL PAIN [None]
  - ABNORMAL FAECES [None]
  - GASTROINTESTINAL HAEMORRHAGE [None]
